FAERS Safety Report 16588742 (Version 1)
Quarter: 2019Q3

REPORT INFORMATION
  Report Type: Other
  Country: FR (occurrence: FR)
  Receive Date: 20190718
  Receipt Date: 20190718
  Transmission Date: 20191004
  Serious: Yes (Other)
  Sender: FDA-Public Use
  Company Number: FR-CELLTRION INC.-2019FR022721

PATIENT

DRUGS (3)
  1. RITUXIMAB (UNKNOWN) [Suspect]
     Active Substance: RITUXIMAB
     Dosage: 1 G
     Route: 065
     Dates: start: 201811
  2. RITUXIMAB (UNKNOWN) [Suspect]
     Active Substance: RITUXIMAB
     Indication: NEPHROTIC SYNDROME
     Dosage: 870 MG, FOR 1 WEEK (1G/1.73M2) MG, QW
     Route: 065
     Dates: start: 201804
  3. RITUXIMAB (UNKNOWN) [Suspect]
     Active Substance: RITUXIMAB
     Dosage: 850 MG, FOR 1 DAY
     Route: 065
     Dates: start: 201903

REACTIONS (9)
  - Abdominal pain [Unknown]
  - Anaphylactoid reaction [Unknown]
  - Dysphagia [Unknown]
  - Dyspnoea [Unknown]
  - Proteinuria [Not Recovered/Not Resolved]
  - Palatal oedema [Unknown]
  - Therapeutic product effect incomplete [Unknown]
  - Product use in unapproved indication [Unknown]
  - Tonsillitis [Unknown]
